FAERS Safety Report 9282652 (Version 1)
Quarter: 2013Q2

REPORT INFORMATION
  Report Type: Spontaneous
  Country: US (occurrence: None)
  Receive Date: 20130509
  Receipt Date: 20130509
  Transmission Date: 20140414
  Serious: Yes (Hospitalization)
  Sender: FDA-Public Use
  Company Number: None

PATIENT
  Age: 51 Year
  Sex: Male
  Weight: 148.33 kg

DRUGS (15)
  1. ALEMTUZUMAB [Suspect]
     Indication: MULTIPLE SCLEROSIS
     Dosage: DAY 1 TO 5 15 MG QD IV (O41)
     Route: 042
     Dates: start: 20130107, end: 20130111
  2. SOLUMEDROL [Suspect]
     Dosage: DAY 1 TO 3 1 GR QD IV (041)
     Route: 042
     Dates: start: 20130101, end: 20130109
  3. ACYCLOVIR [Concomitant]
  4. CYANOCOBALAMINE [Concomitant]
  5. CYMBALTA [Concomitant]
  6. GABAPENTINE [Concomitant]
  7. MELOXICAM [Concomitant]
  8. METHYLPHENIDATE [Concomitant]
  9. PRAMIPRAXOLE [Concomitant]
  10. PRODRIN [Concomitant]
  11. TAMULOSIN [Concomitant]
  12. TESTOSTERONE INJECTABLE [Concomitant]
  13. TOPIRAMATE [Concomitant]
  14. ZOLPIDEM [Concomitant]
  15. CARBAMAZEPINE [Concomitant]

REACTIONS (2)
  - Cardiac failure congestive [None]
  - Disease recurrence [None]
